FAERS Safety Report 6750169-9 (Version None)
Quarter: 2010Q2

REPORT INFORMATION
  Report Type: 
  Country: None (occurrence: None)
  Receive Date: 20100527
  Receipt Date: 20100527
  Transmission Date: 20101027
  Serious: Yes (Hospitalization)
  Sender: FDA-Public Use
  Company Number: None

PATIENT
  Age: 6 Year
  Sex: Male
  Weight: 22 kg

DRUGS (1)
  1. VYVANSE [Suspect]
     Indication: ATTENTION DEFICIT/HYPERACTIVITY DISORDER
     Dosage: 20 MG ONCE A DAY PO
     Route: 048
     Dates: start: 20100421, end: 20100421

REACTIONS (5)
  - AGGRESSION [None]
  - AGITATION [None]
  - DERMATILLOMANIA [None]
  - HALLUCINATION, VISUAL [None]
  - INSOMNIA [None]
